FAERS Safety Report 6866137-2 (Version None)
Quarter: 2010Q2

REPORT INFORMATION
  Report Type: 
  Country: None (occurrence: None)
  Receive Date: 20100601
  Receipt Date: 20090119
  Transmission Date: 20101027
  Serious: No
  Sender: FDA-Public Use
  Company Number: 2009-01028

PATIENT
  Age: 21 Year
  Sex: Male
  Weight: 85.2762 kg

DRUGS (1)
  1. ZICAM COLD REMEDY RAPIDMELTS WITH C+E [Suspect]
     Dosage: BID X 1 DAY
     Dates: start: 20090116, end: 20090117

REACTIONS (1)
  - ANOSMIA [None]
